FAERS Safety Report 10360592 (Version 2)
Quarter: 2014Q3

REPORT INFORMATION
  Report Type: Spontaneous
  Country: BR (occurrence: BR)
  Receive Date: 20140804
  Receipt Date: 20140804
  Transmission Date: 20150326
  Serious: Yes (Other)
  Sender: FDA-Public Use
  Company Number: BR-BAYER-2013-093748

PATIENT
  Age: 30 Year
  Sex: Female

DRUGS (3)
  1. QLAIRA [Suspect]
     Active Substance: DIENOGEST\ESTRADIOL VALERATE
     Indication: MENORRHAGIA
  2. QLAIRA [Suspect]
     Active Substance: DIENOGEST\ESTRADIOL VALERATE
     Indication: CONTRACEPTION
     Dosage: 1 DF, QD
     Route: 048
     Dates: start: 201209, end: 20130427
  3. QLAIRA [Suspect]
     Active Substance: DIENOGEST\ESTRADIOL VALERATE
     Indication: MENSTRUAL CYCLE MANAGEMENT

REACTIONS (7)
  - Epistaxis [None]
  - Nausea [Recovered/Resolved]
  - Vomiting [Recovered/Resolved]
  - Abnormal withdrawal bleeding [Recovered/Resolved]
  - Vascular fragility [None]
  - Pregnancy on oral contraceptive [Recovered/Resolved]
  - Drug ineffective [None]

NARRATIVE: CASE EVENT DATE: 201304
